FAERS Safety Report 10093336 (Version 1)
Quarter: 2014Q2

REPORT INFORMATION
  Report Type: Spontaneous
  Country: US (occurrence: US)
  Receive Date: 20140421
  Receipt Date: 20140421
  Transmission Date: 20141212
  Serious: No
  Sender: FDA-Public Use
  Company Number: US-SA-2013SA124953

PATIENT
  Age: 67 Year
  Sex: Female

DRUGS (6)
  1. ALLEGRA [Suspect]
     Indication: ALLERGY TO ANIMAL
     Route: 048
     Dates: start: 20131124
  2. ATROVENT [Concomitant]
     Indication: EMPHYSEMA
  3. FLOVENT [Concomitant]
     Indication: EMPHYSEMA
  4. LEVOTHYROXINE [Concomitant]
  5. PROPRANOLOL [Concomitant]
  6. SIMVASTATIN [Concomitant]

REACTIONS (3)
  - Migraine [Not Recovered/Not Resolved]
  - Dry mouth [Not Recovered/Not Resolved]
  - Extra dose administered [Unknown]
